FAERS Safety Report 5782403-6 (Version None)
Quarter: 2008Q2

REPORT INFORMATION
  Report Type: 
  Country: None (occurrence: None)
  Receive Date: 20080623
  Receipt Date: 20080609
  Transmission Date: 20081010
  Serious: Yes (Hospitalization, Other)
  Sender: FDA-Public Use
  Company Number: PHHY2008DE10237

PATIENT
  Age: 4 Year
  Sex: Male

DRUGS (5)
  1. TRILEPTAL [Suspect]
     Indication: EPILEPSY
     Dosage: 10 ML
     Route: 048
     Dates: start: 20071101, end: 20080607
  2. TRILEPTAL [Interacting]
     Dosage: 10 ML
     Route: 048
     Dates: start: 20080609
  3. MIDAZOLAM HCL [Interacting]
     Indication: SEDATION
     Dosage: UNK
     Dates: start: 20080506, end: 20080506
  4. MIDAZOLAM HCL [Interacting]
     Dosage: UNK
     Dates: start: 20080607, end: 20080607
  5. RECTODELT [Concomitant]
     Dosage: UNK
     Dates: start: 20080607, end: 20080607

REACTIONS (6)
  - AGITATION [None]
  - DRUG INTERACTION [None]
  - FEELING ABNORMAL [None]
  - PARADOXICAL DRUG REACTION [None]
  - PNEUMONIA [None]
  - PSEUDOCROUP [None]
